FAERS Safety Report 13591226 (Version 1)
Quarter: 2017Q2

REPORT INFORMATION
  Report Type: Spontaneous
  Country: US (occurrence: US)
  Receive Date: 20170530
  Receipt Date: 20170530
  Transmission Date: 20170830
  Serious: No
  Sender: FDA-Public Use
  Company Number: None

PATIENT
  Sex: Female

DRUGS (1)
  1. CAPECITABINE 500 MG ACCORD [Suspect]
     Active Substance: CAPECITABINE
     Indication: BREAST CANCER FEMALE
     Dosage: 2 TABLETS BID FOR 14 DAYS ON, 7 DAYS OFF PO
     Route: 048
     Dates: start: 20160601

REACTIONS (1)
  - Blood glucose increased [None]
